FAERS Safety Report 11357678 (Version 1)
Quarter: 2015Q3

REPORT INFORMATION
  Report Type: Spontaneous
  Country: US (occurrence: US)
  Receive Date: 20150803
  Receipt Date: 20150803
  Transmission Date: 20151125
  Serious: No
  Sender: FDA-Public Use
  Company Number: US-ELI_LILLY_AND_COMPANY-US201103002368

PATIENT
  Age: 49 Year
  Sex: Male

DRUGS (6)
  1. LEXAPRO [Concomitant]
     Active Substance: ESCITALOPRAM OXALATE
     Indication: ANXIETY
  2. ZYPREXA [Suspect]
     Active Substance: OLANZAPINE
     Indication: ANXIETY
     Dosage: 10 MG, DAILY (1/D)
     Dates: start: 201009, end: 201010
  3. ZYPREXA [Suspect]
     Active Substance: OLANZAPINE
     Dosage: 2.5 MG, DAILY (1/D)
     Dates: start: 201101, end: 201101
  4. ZYPREXA [Suspect]
     Active Substance: OLANZAPINE
     Dosage: 10 MG, DAILY (1/D)
     Dates: start: 201101, end: 201101
  5. ZYPREXA [Suspect]
     Active Substance: OLANZAPINE
     Dosage: 1.25 MG, DAILY (1/D)
     Dates: start: 201101, end: 201101
  6. ZYPREXA [Suspect]
     Active Substance: OLANZAPINE
     Dosage: 7.5 MG, DAILY (1/D)
     Dates: start: 201101, end: 201101

REACTIONS (8)
  - Wrong technique in product usage process [Unknown]
  - Anxiety [Recovered/Resolved]
  - Anxiety [Unknown]
  - Muscle twitching [Unknown]
  - Tardive dyskinesia [Unknown]
  - Adverse event [Unknown]
  - Tremor [Unknown]
  - Tongue disorder [Unknown]
